FAERS Safety Report 8394020-2 (Version None)
Quarter: 2012Q2

REPORT INFORMATION
  Report Type: 
  Country: None (occurrence: None)
  Receive Date: 20120530
  Receipt Date: 20120504
  Transmission Date: 20120825
  Serious: Yes (Hospitalization)
  Sender: FDA-Public Use
  Company Number: CA-SANOFI-AVENTIS-2012SA037324

PATIENT
  Age: 60 Year
  Sex: Male

DRUGS (8)
  1. CLOMIPRAMINE HCL [Concomitant]
  2. OXYBUTYNIN [Concomitant]
  3. PANTOPRAZOLE [Concomitant]
  4. PROPRANOLOL [Concomitant]
  5. DESMOPRESSIN ACETATE [Suspect]
  6. CLONAZEPAM [Concomitant]
  7. LOPERAMIDE [Concomitant]
  8. OLANZAPINE [Concomitant]

REACTIONS (5)
  - BLOOD CREATINE INCREASED [None]
  - BLOOD OSMOLARITY INCREASED [None]
  - FALL [None]
  - GENERAL PHYSICAL HEALTH DETERIORATION [None]
  - HYPONATRAEMIA [None]
